FAERS Safety Report 6999042-1 (Version None)
Quarter: 2010Q3

REPORT INFORMATION
  Report Type: 
  Country: None (occurrence: None)
  Receive Date: 20100920
  Receipt Date: 20100907
  Transmission Date: 20110219
  Serious: Yes (Other)
  Sender: FDA-Public Use
  Company Number: US-ELI_LILLY_AND_COMPANY-US201009001497

PATIENT
  Sex: Female

DRUGS (1)
  1. FORTEO [Suspect]
     Indication: OSTEOPOROSIS
     Dosage: 20 UG, EACH EVENING
     Dates: start: 20100812, end: 20100901

REACTIONS (8)
  - CONTUSION [None]
  - DYSPNOEA [None]
  - HYPERMOBILITY SYNDROME [None]
  - INJECTION SITE HAEMATOMA [None]
  - INJECTION SITE RASH [None]
  - JOINT DISLOCATION [None]
  - PAIN [None]
  - PELVIC FLOOR MUSCLE WEAKNESS [None]
